FAERS Safety Report 10231558 (Version 1)
Quarter: 2014Q2

REPORT INFORMATION
  Report Type: Spontaneous
  Country: US (occurrence: US)
  Receive Date: 20140611
  Receipt Date: 20140611
  Transmission Date: 20141212
  Serious: Yes (Other)
  Sender: FDA-Public Use
  Company Number: US-ACTAVIS-2014-12825

PATIENT
  Age: 36 Year
  Sex: Male

DRUGS (6)
  1. CYCLOSPORINE (WATSON LABORATORIES) [Suspect]
     Indication: RENAL TRANSPLANT
     Dosage: UNKNOWN
     Route: 065
     Dates: start: 1995
  2. CYCLOSPORINE (WATSON LABORATORIES) [Suspect]
     Indication: IMMUNOSUPPRESSANT DRUG THERAPY
  3. PREDNISONE [Concomitant]
     Indication: RENAL TRANSPLANT
     Dosage: UNKNOWN
     Route: 065
     Dates: start: 1995
  4. PREDNISONE [Concomitant]
     Indication: IMMUNOSUPPRESSANT DRUG THERAPY
  5. AZATHIOPRINE [Concomitant]
     Indication: RENAL TRANSPLANT
     Dosage: UNKNOWN
     Route: 065
     Dates: start: 1995
  6. AZATHIOPRINE [Concomitant]
     Indication: IMMUNOSUPPRESSANT DRUG THERAPY

REACTIONS (2)
  - Toxicity to various agents [Unknown]
  - Blood creatinine increased [Unknown]
